FAERS Safety Report 5226056-4 (Version None)
Quarter: 2007Q1

REPORT INFORMATION
  Report Type: 
  Country: None (occurrence: None)
  Receive Date: 20070201
  Receipt Date: 20070125
  Transmission Date: 20070707
  Serious: Yes (Hospitalization)
  Sender: FDA-Public Use
  Company Number: FR-BRISTOL-MYERS SQUIBB COMPANY-13640214

PATIENT
  Age: 52 Year
  Sex: Female

DRUGS (3)
  1. COAPROVEL [Suspect]
     Route: 048
     Dates: start: 20061122, end: 20061126
  2. ZESTORETIC [Suspect]
     Route: 048
     Dates: start: 20020615, end: 20061122
  3. LISINOPRIL AND HYDROCHLOROTHIAZIDE [Suspect]
     Dates: start: 20061004, end: 20061118

REACTIONS (4)
  - COUGH [None]
  - LARYNX IRRITATION [None]
  - PRURITUS [None]
  - URTICARIA [None]
